FAERS Safety Report 19112853 (Version 15)
Quarter: 2025Q3

REPORT INFORMATION
  Report Type: Spontaneous
  Country: US (occurrence: US)
  Receive Date: 20210408
  Receipt Date: 20250908
  Transmission Date: 20251021
  Serious: Yes (Hospitalization, Other)
  Sender: PFIZER
  Company Number: US-PFIZER INC-2021366663

PATIENT
  Age: 55 Year
  Sex: Female
  Weight: 68.5 kg

DRUGS (7)
  1. BOSULIF [Suspect]
     Active Substance: BOSUTINIB MONOHYDRATE
     Indication: Chronic myeloid leukaemia
     Dosage: TWO 200MG TABLETS EVERY EVENING AT 7PM
     Route: 048
     Dates: start: 2019
  2. BOSULIF [Suspect]
     Active Substance: BOSUTINIB MONOHYDRATE
     Indication: Chronic myeloid leukaemia
     Dosage: 400 MG, 1X/DAY (TAKE 1 TABLET)
     Route: 048
  3. BOSULIF [Suspect]
     Active Substance: BOSUTINIB MONOHYDRATE
     Indication: Chronic myeloid leukaemia
     Dosage: TAKE 2 TABLETS OF 100 MG
     Route: 048
     Dates: end: 20230803
  4. BOSULIF [Suspect]
     Active Substance: BOSUTINIB MONOHYDRATE
     Dosage: TAKE 2 TABLETS OF 100 MG
     Route: 048
  5. BOSULIF [Suspect]
     Active Substance: BOSUTINIB MONOHYDRATE
     Dosage: TAKE 2 TABLETS BY MOUTH DAILY/ 100 MG ORAL TABLET
     Route: 048
  6. ZOFRAN [Concomitant]
     Active Substance: ONDANSETRON HYDROCHLORIDE
  7. GEODON [Concomitant]
     Active Substance: ZIPRASIDONE HYDROCHLORIDE\ZIPRASIDONE MESYLATE
     Dosage: TAKE 1 CAPSULE BY MOUTH ONCE DAIL
     Route: 048

REACTIONS (13)
  - Pneumonia [Unknown]
  - Adhesion [Unknown]
  - Clostridium difficile colitis [Unknown]
  - Scar [Unknown]
  - Weight decreased [Unknown]
  - Gastrointestinal toxicity [Unknown]
  - Abdominal pain [Unknown]
  - Faecal volume increased [Unknown]
  - Panic attack [Recovering/Resolving]
  - Gastritis [Unknown]
  - Nausea [Recovered/Resolved]
  - Illness [Not Recovered/Not Resolved]
  - Pyrexia [Not Recovered/Not Resolved]

NARRATIVE: CASE EVENT DATE: 20210301
